FAERS Safety Report 9757585 (Version 1)
Quarter: 2013Q4

REPORT INFORMATION
  Report Type: Spontaneous
  Country: US (occurrence: US)
  Receive Date: 20131216
  Receipt Date: 20131216
  Transmission Date: 20140711
  Serious: Yes (Other)
  Sender: FDA-Public Use
  Company Number: US-009507513-1312USA005380

PATIENT
  Sex: Male

DRUGS (2)
  1. JANUVIA [Suspect]
     Route: 048
  2. METFORMIN [Concomitant]

REACTIONS (4)
  - Surgery [Unknown]
  - Pancreatic cyst [Unknown]
  - Pancreatic disorder [Unknown]
  - Type 1 diabetes mellitus [Unknown]
